FAERS Safety Report 4557178-9 (Version None)
Quarter: 2005Q1

REPORT INFORMATION
  Report Type: 
  Country: None (occurrence: None)
  Receive Date: 20050114
  Receipt Date: 20050103
  Transmission Date: 20050727
  Serious: Yes (Death)
  Sender: FDA-Public Use
  Company Number: MK200410-0186-2

PATIENT
  Age: 55 Year
  Sex: Male
  Weight: 118.8424 kg

DRUGS (1)
  1. CONRAY [Suspect]
     Dosage: ONCE, IT
     Route: 037
     Dates: start: 20041014, end: 20041014

REACTIONS (13)
  - ARTERIAL INJURY [None]
  - FAT EMBOLISM [None]
  - GRANULOMA [None]
  - HAEMORRHAGE [None]
  - INJURY [None]
  - LIGAMENT DISORDER [None]
  - LUMBAR VERTEBRAL FRACTURE [None]
  - MEDICATION ERROR [None]
  - MUSCLE SPASMS [None]
  - PELVIC FRACTURE [None]
  - PULMONARY EMBOLISM [None]
  - SOFT TISSUE HAEMORRHAGE [None]
  - VASCULAR INJURY [None]
